FAERS Safety Report 14223068 (Version 2)
Quarter: 2018Q1

REPORT INFORMATION
  Report Type: Spontaneous
  Country: US (occurrence: US)
  Receive Date: 20171124
  Receipt Date: 20180123
  Transmission Date: 20180508
  Serious: No
  Sender: FDA-Public Use
  Company Number: US-JNJFOC-20171033344

PATIENT
  Age: 30 Year
  Sex: Female

DRUGS (2)
  1. OMEPRAZOLE. [Concomitant]
     Active Substance: OMEPRAZOLE
     Route: 065
  2. REMICADE [Suspect]
     Active Substance: INFLIXIMAB
     Indication: CROHN^S DISEASE
     Route: 042
     Dates: start: 201505

REACTIONS (4)
  - Drug dose omission [Unknown]
  - Product use issue [Unknown]
  - Vein disorder [Unknown]
  - Off label use [Unknown]

NARRATIVE: CASE EVENT DATE: 201505
